FAERS Safety Report 16046765 (Version 2)
Quarter: 2019Q1

REPORT INFORMATION
  Report Type: Spontaneous
  Country: US (occurrence: US)
  Receive Date: 20190307
  Receipt Date: 20190327
  Transmission Date: 20190418
  Serious: Yes (Hospitalization)
  Sender: FDA-Public Use
  Company Number: US-TEVA-2019-US-1019713

PATIENT
  Age: 47 Year
  Sex: Male

DRUGS (2)
  1. BACLOFEN. [Suspect]
     Active Substance: BACLOFEN
     Indication: BLADDER SPASM
     Route: 065
  2. LORAZEPAM. [Suspect]
     Active Substance: LORAZEPAM
     Indication: WITHDRAWAL SYNDROME
     Dosage: 8 MILLIGRAM DAILY;
     Route: 042

REACTIONS (5)
  - Off label use [Unknown]
  - Respiratory failure [Recovered/Resolved]
  - Psychotic disorder [Recovered/Resolved]
  - Muscle spasms [Recovered/Resolved]
  - Withdrawal syndrome [Recovered/Resolved]
